FAERS Safety Report 12427065 (Version 4)
Quarter: 2016Q4

REPORT INFORMATION
  Report Type: Report from Study
  Country: US (occurrence: US)
  Receive Date: 20160601
  Receipt Date: 20161222
  Transmission Date: 20170207
  Serious: Yes (Hospitalization)
  Sender: FDA-Public Use
  Company Number: US-BIOGEN-2016BI00243335

PATIENT
  Age: 59 Year
  Sex: Male

DRUGS (2)
  1. TYSABRI [Suspect]
     Active Substance: NATALIZUMAB
     Indication: MULTIPLE SCLEROSIS
     Route: 065
  2. TYSABRI [Suspect]
     Active Substance: NATALIZUMAB
     Route: 042
     Dates: start: 20121107

REACTIONS (9)
  - Constipation [Unknown]
  - Blood count abnormal [Unknown]
  - Dehydration [Recovered/Resolved]
  - Prescribed underdose [Not Recovered/Not Resolved]
  - Device dislocation [Not Recovered/Not Resolved]
  - Drug dose omission [Recovered/Resolved]
  - Pyrexia [Unknown]
  - Blood urine present [Unknown]
  - Urinary tract infection [Recovered/Resolved]

NARRATIVE: CASE EVENT DATE: 20161022
